FAERS Safety Report 7954297-1 (Version None)
Quarter: 2011Q4

REPORT INFORMATION
  Report Type: 
  Country: None (occurrence: None)
  Receive Date: 20111129
  Receipt Date: 20111116
  Transmission Date: 20120403
  Serious: Yes (Hospitalization, Other)
  Sender: FDA-Public Use
  Company Number: 2011SP012083

PATIENT
  Age: 25 Year
  Sex: Female
  Weight: 69.8539 kg

DRUGS (1)
  1. NUVARING [Suspect]
     Indication: CONTRACEPTION
     Dates: start: 20061001, end: 20090326

REACTIONS (30)
  - OVARIAN CYST [None]
  - HYPERCOAGULATION [None]
  - RIGHT ATRIAL DILATATION [None]
  - VERTIGO [None]
  - CENTRAL NERVOUS SYSTEM INFLAMMATION [None]
  - MUSCLE SPASMS [None]
  - MUSCULOSKELETAL PAIN [None]
  - MULTIPLE INJURIES [None]
  - DILATATION VENTRICULAR [None]
  - DECREASED APPETITE [None]
  - PULMONARY EMBOLISM [None]
  - DEEP VEIN THROMBOSIS [None]
  - HEADACHE [None]
  - PELVIC PAIN [None]
  - AORTIC VALVE INCOMPETENCE [None]
  - PULMONARY INFARCTION [None]
  - CERVICAL DYSPLASIA [None]
  - VAGINAL ODOUR [None]
  - INCORRECT DRUG ADMINISTRATION DURATION [None]
  - LIGAMENT SPRAIN [None]
  - GAIT DISTURBANCE [None]
  - VAGINAL DISCHARGE [None]
  - MITRAL VALVE INCOMPETENCE [None]
  - CHEST PAIN [None]
  - SYNCOPE [None]
  - LABYRINTHITIS [None]
  - IMMOBILE [None]
  - DIZZINESS POSTURAL [None]
  - UPPER RESPIRATORY TRACT INFECTION [None]
  - CONTUSION [None]
